FAERS Safety Report 7394539-7 (Version None)
Quarter: 2011Q2

REPORT INFORMATION
  Report Type: 
  Country: None (occurrence: None)
  Receive Date: 20110405
  Receipt Date: 20110331
  Transmission Date: 20111010
  Serious: Yes (Death, Hospitalization)
  Sender: FDA-Public Use
  Company Number: PHFR2011GB00893

PATIENT
  Sex: Male
  Weight: 81.6 kg

DRUGS (3)
  1. CLOZARIL [Suspect]
     Dosage: 50 MG, UNK
     Route: 048
  2. CLOZARIL [Suspect]
     Dosage: 350 MG
     Route: 048
     Dates: start: 20010701
  3. CLOZARIL [Suspect]
     Indication: SCHIZOPHRENIA
     Dosage: UNK MG, UNK
     Route: 048
     Dates: start: 19920324

REACTIONS (3)
  - MALIGNANT NEOPLASM OF SPINAL CORD [None]
  - GASTRIC CANCER [None]
  - INFECTION [None]
